FAERS Safety Report 6221444-1 (Version None)
Quarter: 2009Q2

REPORT INFORMATION
  Report Type: 
  Country: None (occurrence: None)
  Receive Date: 20090610
  Receipt Date: 20090529
  Transmission Date: 20091009
  Serious: Yes (Hospitalization)
  Sender: FDA-Public Use
  Company Number: MX-ELI_LILLY_AND_COMPANY-MX200905001435

PATIENT
  Age: 64 Year
  Sex: Male
  Weight: 86 kg

DRUGS (3)
  1. HUMULIN N [Suspect]
     Indication: DIABETES MELLITUS
     Dosage: 20 IU, 2/D
     Route: 058
     Dates: start: 20080501
  2. HUMULIN N [Suspect]
     Dosage: 20 IU, 2/D
     Route: 058
     Dates: start: 20090430
  3. HUMULIN N [Suspect]
     Dosage: 15 IU, 2/D
     Route: 058

REACTIONS (4)
  - FOOD CRAVING [None]
  - HERNIA [None]
  - HYPOGLYCAEMIA [None]
  - TREMOR [None]
